FAERS Safety Report 9591072 (Version 1)
Quarter: 2013Q4

REPORT INFORMATION
  Report Type: Spontaneous
  Country: US (occurrence: US)
  Receive Date: 20131003
  Receipt Date: 20131003
  Transmission Date: 20140711
  Serious: No
  Sender: FDA-Public Use
  Company Number: US-AMGEN-USASP2012078753

PATIENT
  Age: 44 Year
  Sex: Female
  Weight: 73.02 kg

DRUGS (5)
  1. ENBREL [Suspect]
     Indication: PRODUCT USED FOR UNKNOWN INDICATION
     Dosage: 50 MG/ML, QWK
     Route: 058
  2. MULTIVITAMIN                       /00097801/ [Concomitant]
     Dosage: UNK
  3. EFFEXOR [Concomitant]
     Dosage: 25 MG, UNK
  4. ADVIL                              /00044201/ [Concomitant]
     Dosage: 200 MG, UNK
  5. ALEVE [Concomitant]
     Dosage: 220 MG, UNK

REACTIONS (1)
  - Injection site erythema [Unknown]
